FAERS Safety Report 8104347-7 (Version None)
Quarter: 2012Q1

REPORT INFORMATION
  Report Type: 
  Country: None (occurrence: None)
  Receive Date: 20120130
  Receipt Date: 20120123
  Transmission Date: 20120608
  Serious: Yes (Other)
  Sender: FDA-Public Use
  Company Number: US-BAYER-2012-007587

PATIENT
  Age: 26 Year
  Sex: Female

DRUGS (1)
  1. ASPIRIN [Suspect]
     Dosage: LOW DOSE

REACTIONS (1)
  - CEREBROVASCULAR ACCIDENT [None]
